FAERS Safety Report 6423976-X (Version None)
Quarter: 2009Q4

REPORT INFORMATION
  Report Type: 
  Country: None (occurrence: None)
  Receive Date: 20091102
  Receipt Date: 20091026
  Transmission Date: 20100525
  Serious: Yes (Other)
  Sender: FDA-Public Use
  Company Number: PHEH2009US14442

PATIENT
  Sex: Female

DRUGS (3)
  1. AFINITOR [Suspect]
     Dosage: 10 MG, UNK
  2. AFINITOR [Suspect]
     Dosage: 10 MG, UNK
     Dates: start: 20090801
  3. ANTIHYPERTENSIVE DRUGS [Concomitant]
     Dosage: UNK, UNK

REACTIONS (4)
  - ANAEMIA [None]
  - DECREASED APPETITE [None]
  - ORAL DISORDER [None]
  - SURGERY [None]
